FAERS Safety Report 21439046 (Version 1)
Quarter: 2022Q4

REPORT INFORMATION
  Report Type: Spontaneous
  Country: US (occurrence: US)
  Receive Date: 20221011
  Receipt Date: 20221011
  Transmission Date: 20230113
  Serious: Yes (Hospitalization, Other)
  Sender: FDA-Public Use
  Company Number: US-PFIZER INC-PV202200073202

PATIENT
  Age: 35 Year
  Sex: Male

DRUGS (1)
  1. AZITHROMYCIN [Suspect]
     Active Substance: AZITHROMYCIN
     Indication: Oropharyngeal pain
     Dosage: UNK

REACTIONS (4)
  - Haematochezia [Recovered/Resolved]
  - Gastric ulcer [Unknown]
  - Purpura [Unknown]
  - Arthralgia [Unknown]
